FAERS Safety Report 15295620 (Version 1)
Quarter: 2018Q3

REPORT INFORMATION
  Report Type: Spontaneous
  Country: US (occurrence: US)
  Receive Date: 20180820
  Receipt Date: 20180820
  Transmission Date: 20181010
  Serious: No
  Sender: FDA-Public Use
  Company Number: US-SA-2018SA224095

PATIENT
  Age: 3 Month
  Sex: Female

DRUGS (3)
  1. APAP [Concomitant]
     Active Substance: ACETAMINOPHEN
  2. BENADRYL [Concomitant]
     Active Substance: DIPHENHYDRAMINE HYDROCHLORIDE
  3. ALDURAZYME [Suspect]
     Active Substance: LARONIDASE
     Dosage: UNK
     Dates: start: 20180802

REACTIONS (1)
  - Ventricular extrasystoles [Recovered/Resolved]

NARRATIVE: CASE EVENT DATE: 20180802
